FAERS Safety Report 4508452-3 (Version None)
Quarter: 2004Q4

REPORT INFORMATION
  Report Type: 
  Country: None (occurrence: None)
  Receive Date: 20041123
  Receipt Date: 20040218
  Transmission Date: 20050328
  Serious: No
  Sender: FDA-Public Use
  Company Number: US-GLAXOSMITHKLINE-A0498772A

PATIENT
  Age: 22 Month
  Sex: Female

DRUGS (3)
  1. WELLBUTRIN SR [Suspect]
     Dosage: 100MG PER DAY
     Dates: start: 20040101
  2. PREVACID [Concomitant]
  3. LEVSIN PB [Concomitant]

REACTIONS (2)
  - FAECES DISCOLOURED [None]
  - VOMITING [None]
